FAERS Safety Report 7233079-2 (Version None)
Quarter: 2011Q1

REPORT INFORMATION
  Report Type: 
  Country: None (occurrence: None)
  Receive Date: 20110106
  Receipt Date: 20101228
  Transmission Date: 20110831
  Serious: Yes (Hospitalization)
  Sender: FDA-Public Use
  Company Number: TAJPN-10-0770

PATIENT
  Age: 53 Year
  Sex: Female
  Weight: 55 kg

DRUGS (3)
  1. DEXART (DEXAMETHASONE SODIUM PHOSPHATE) [Concomitant]
  2. ABRAXANE [Suspect]
     Indication: BREAST CANCER METASTATIC
     Dosage: (380 MG)
     Dates: start: 20101202, end: 20101202
  3. ALOXI [Concomitant]

REACTIONS (4)
  - DECREASED APPETITE [None]
  - WHITE BLOOD CELL COUNT DECREASED [None]
  - NEUTROPHIL COUNT DECREASED [None]
  - HAEMOGLOBIN S DECREASED [None]
